FAERS Safety Report 14048284 (Version 1)
Quarter: 2017Q4

REPORT INFORMATION
  Report Type: Report from Study
  Country: US (occurrence: US)
  Receive Date: 20171005
  Receipt Date: 20171005
  Transmission Date: 20180321
  Serious: No
  Sender: FDA-Public Use
  Company Number: US-RETROPHIN, INC.-2017RTN00098

PATIENT
  Sex: Female

DRUGS (1)
  1. CHOLBAM [Suspect]
     Active Substance: CHOLIC ACID
     Indication: LIPIDOSIS
     Dosage: 250 MG, 2X/DAY
     Dates: start: 20170512

REACTIONS (3)
  - Somnolence [Not Recovered/Not Resolved]
  - Gait disturbance [Not Recovered/Not Resolved]
  - Disorientation [Not Recovered/Not Resolved]

NARRATIVE: CASE EVENT DATE: 2017
